FAERS Safety Report 6034839-6 (Version None)
Quarter: 2009Q1

REPORT INFORMATION
  Report Type: 
  Country: None (occurrence: None)
  Receive Date: 20090108
  Receipt Date: 20081226
  Transmission Date: 20090719
  Serious: Yes (Hospitalization)
  Sender: FDA-Public Use
  Company Number: KV200801408

PATIENT
  Sex: Male

DRUGS (1)
  1. MORPHINE SULFATE [Suspect]
     Indication: ARTHRALGIA
     Dosage: 30 MG, TID, ORAL
     Route: 048
     Dates: start: 20030101

REACTIONS (5)
  - CARDIAC DISORDER [None]
  - DYSPNOEA [None]
  - HEART RATE IRREGULAR [None]
  - PRODUCT QUALITY ISSUE [None]
  - PULMONARY THROMBOSIS [None]
